FAERS Safety Report 7900870-6 (Version None)
Quarter: 2011Q4

REPORT INFORMATION
  Report Type: 
  Country: None (occurrence: None)
  Receive Date: 20111108
  Receipt Date: 20111025
  Transmission Date: 20120403
  Serious: Yes (Hospitalization)
  Sender: FDA-Public Use
  Company Number: ZA-CELGENEUS-143-CCAZA-11102735

PATIENT
  Age: 49 Year
  Sex: Male
  Weight: 97.3 kg

DRUGS (2)
  1. AZACITIDINE [Suspect]
     Route: 041
     Dates: start: 20100628, end: 20111024
  2. THALIDOMIDE [Suspect]
     Route: 048

REACTIONS (2)
  - DEVICE RELATED INFECTION [None]
  - ANAPHYLACTIC REACTION [None]
